FAERS Safety Report 9738261 (Version 1)
Quarter: 2013Q4

REPORT INFORMATION
  Report Type: Spontaneous
  Country: US (occurrence: US)
  Receive Date: 20131208
  Receipt Date: 20131208
  Transmission Date: 20140711
  Serious: No
  Sender: FDA-Public Use
  Company Number: -SAAVPROD-RENA-1001704

PATIENT
  Age: 33 Year
  Sex: Male

DRUGS (3)
  1. SEVELAMER CARBONATE [Suspect]
     Indication: HYPERPHOSPHATAEMIA
     Dosage: 12.8 G, QD
     Route: 065
     Dates: start: 201206
  2. SODIUM BICARBONATE [Concomitant]
     Indication: PRODUCT USED FOR UNKNOWN INDICATION
     Dosage: 3.9 G, QD
     Route: 065
     Dates: start: 201109
  3. SODIUM BICARBONATE [Concomitant]
     Indication: ANTACID THERAPY
     Dosage: 3.9 G, QD
     Route: 065
     Dates: start: 201109

REACTIONS (1)
  - Hyperphosphataemia [Not Recovered/Not Resolved]
